FAERS Safety Report 12499118 (Version 2)
Quarter: 2017Q4

REPORT INFORMATION
  Report Type: Spontaneous
  Country: GB (occurrence: GB)
  Receive Date: 20160627
  Receipt Date: 20171011
  Transmission Date: 20180320
  Serious: Yes (Hospitalization, Other)
  Sender: FDA-Public Use
  Company Number: GB-DRREDDYS-GER/UKI/16/0080719

PATIENT
  Age: 54 Year
  Sex: Female

DRUGS (3)
  1. CLOZARIL [Suspect]
     Active Substance: CLOZAPINE
     Indication: SCHIZOPHRENIA
     Route: 048
     Dates: start: 20110614, end: 20160523
  2. CLOZARIL [Suspect]
     Active Substance: CLOZAPINE
  3. OLANZAPINE. [Suspect]
     Active Substance: OLANZAPINE
     Indication: PRODUCT USED FOR UNKNOWN INDICATION

REACTIONS (2)
  - Mental disorder [Recovered/Resolved]
  - Drug ineffective [Unknown]

NARRATIVE: CASE EVENT DATE: 20160525
